FAERS Safety Report 14908730 (Version 1)
Quarter: 2018Q2

REPORT INFORMATION
  Report Type: Report from Study
  Country: US (occurrence: US)
  Receive Date: 20180517
  Receipt Date: 20180517
  Transmission Date: 20180711
  Serious: Yes (Hospitalization, Other)
  Sender: FDA-Public Use
  Company Number: US-JNJFOC-20170823523

PATIENT
  Age: 74 Year
  Sex: Female

DRUGS (2)
  1. IMBRUVICA [Suspect]
     Active Substance: IBRUTINIB
     Indication: CHRONIC LYMPHOCYTIC LEUKAEMIA
     Route: 048
     Dates: start: 20161001, end: 20180315
  2. IMBRUVICA [Suspect]
     Active Substance: IBRUTINIB
     Indication: CHRONIC LYMPHOCYTIC LEUKAEMIA
     Route: 048
     Dates: start: 2018

REACTIONS (8)
  - Memory impairment [Unknown]
  - Chronic kidney disease [Unknown]
  - Paraesthesia oral [Unknown]
  - Skin burning sensation [Unknown]
  - Oral discomfort [Unknown]
  - Oral pain [Not Recovered/Not Resolved]
  - Disease progression [Unknown]
  - Drug dose omission [Unknown]

NARRATIVE: CASE EVENT DATE: 20161001
